FAERS Safety Report 8558779-3 (Version None)
Quarter: 2012Q3

REPORT INFORMATION
  Report Type: 
  Country: None (occurrence: None)
  Receive Date: 20120801
  Receipt Date: 20120719
  Transmission Date: 20120928
  Serious: Yes (Hospitalization)
  Sender: FDA-Public Use
  Company Number: US-009507513-1207USA007671

PATIENT

DRUGS (12)
  1. OXYCODONE HCL [Concomitant]
     Indication: BACK PAIN
  2. ALBUTEROL [Concomitant]
     Indication: SEASONAL ALLERGY
     Dosage: 2 PUFFS, PRN
     Route: 055
     Dates: start: 20100101
  3. MK-3034 [Suspect]
     Indication: HEPATITIS C
     Dosage: 800 MG, TID
     Route: 048
     Dates: start: 20090115, end: 20091114
  4. LORATADINE [Concomitant]
     Indication: SEASONAL ALLERGY
     Dosage: 10 MGM, QD
     Route: 048
     Dates: start: 20080112
  5. REBETOL [Suspect]
     Indication: HEPATITIS C
     Dosage: 3 DF BID, TOTAL DOSE 1000MG
     Route: 048
     Dates: start: 20081218, end: 20091114
  6. PEG-INTRON [Suspect]
     Indication: HEPATITIS C
     Dosage: 120/0,5 MG
     Dates: start: 20081218, end: 20091114
  7. MULTIVITAMINES [Concomitant]
     Indication: VITAMIN SUPPLEMENTATION
     Dosage: 1 UNK, UNK
     Route: 048
     Dates: start: 20070901
  8. PRILOSEC [Concomitant]
     Indication: GASTROOESOPHAGEAL REFLUX DISEASE
     Dosage: 20 MG, QD
     Route: 048
     Dates: start: 20081001
  9. ASPIRIN [Concomitant]
     Indication: PROPHYLAXIS
     Dosage: 81 MG, QD
     Route: 048
     Dates: start: 20090101
  10. OXYCODONE HCL [Concomitant]
     Indication: NECK PAIN
     Dosage: 30 MG, Q4H
     Route: 048
     Dates: start: 20110101, end: 20120714
  11. AMOXICILLIN [Concomitant]
     Indication: FOLLICULITIS
     Dosage: 500 MG, QD
     Route: 048
     Dates: start: 20120512, end: 20120521
  12. GASTROINTESTINAL PREPARATIONS (UNSPECIFIED) [Concomitant]
     Indication: CONSTIPATION PROPHYLAXIS
     Dosage: 1 DF, UNK
     Route: 048
     Dates: start: 20071001

REACTIONS (1)
  - CHEST PAIN [None]
